FAERS Safety Report 9185356 (Version 3)
Quarter: 2014Q2

REPORT INFORMATION
  Report Type: Spontaneous
  Country: JP (occurrence: JP)
  Receive Date: 20121101
  Receipt Date: 20131018
  Transmission Date: 20141212
  Serious: Yes (Death)
  Sender: FDA-Public Use
  Company Number: JP-PFIZER INC-K200900438

PATIENT
  Age: 71 Year
  Sex: Female

DRUGS (2)
  1. SYNERCID [Suspect]
     Indication: SEPSIS
     Dosage: UNK
     Route: 042
     Dates: start: 200903, end: 200903
  2. VANCOMYCIN [Suspect]
     Indication: STAPHYLOCOCCAL INFECTION

REACTIONS (3)
  - Sepsis [Fatal]
  - Disease progression [Fatal]
  - Drug ineffective [Fatal]
